FAERS Safety Report 8383196-9 (Version None)
Quarter: 2012Q2

REPORT INFORMATION
  Report Type: 
  Country: None (occurrence: None)
  Receive Date: 20120524
  Receipt Date: 20120515
  Transmission Date: 20120825
  Serious: Yes (Hospitalization)
  Sender: FDA-Public Use
  Company Number: IT-BRISTOL-MYERS SQUIBB COMPANY-16613416

PATIENT

DRUGS (2)
  1. ERBITUX [Suspect]
     Indication: COLORECTAL CANCER
     Route: 042
     Dates: start: 20100714, end: 20100714
  2. IRINOTECAN HCL [Concomitant]
     Indication: COLORECTAL CANCER
     Dosage: INFUSION
     Route: 042
     Dates: start: 20100714, end: 20100714

REACTIONS (2)
  - THROMBOCYTOPENIA [None]
  - FEBRILE NEUTROPENIA [None]
